FAERS Safety Report 18122148 (Version 1)
Quarter: 2020Q3

REPORT INFORMATION
  Report Type: Other
  Country: AT (occurrence: AT)
  Receive Date: 20200806
  Receipt Date: 20200806
  Transmission Date: 20201103
  Serious: Yes (Other)
  Sender: FDA-Public Use
  Company Number: AT-CELLTRION INC.-2020AT024924

PATIENT

DRUGS (6)
  1. HEMLIBRA [Suspect]
     Active Substance: EMICIZUMAB-KXWH
     Dosage: 3 MG/KG, 240 MG
     Route: 065
     Dates: start: 20191123
  2. HEMLIBRA [Suspect]
     Active Substance: EMICIZUMAB-KXWH
     Indication: ACQUIRED HAEMOPHILIA
     Dosage: 3 MG/KG, 240 MG
     Route: 065
     Dates: start: 20191112
  3. HEMLIBRA [Suspect]
     Active Substance: EMICIZUMAB-KXWH
     Dosage: 3 MG/KG, 240 MG
     Route: 065
     Dates: start: 20191115
  4. RITUXIMAB (UNKNOWN) [Suspect]
     Active Substance: RITUXIMAB
     Indication: PRODUCT USED FOR UNKNOWN INDICATION
     Dosage: 375 MG/M2, EVERY 0.25 WEEK
     Route: 065
     Dates: start: 20191105
  5. HEMLIBRA [Suspect]
     Active Substance: EMICIZUMAB-KXWH
     Dosage: 3 MG/KG, 240 MG
     Route: 065
     Dates: start: 20191128
  6. URBASON [METHYLPREDNISOLONE] [Suspect]
     Active Substance: METHYLPREDNISOLONE
     Indication: PRODUCT USED FOR UNKNOWN INDICATION
     Dosage: 80 MG, TAPERING
     Route: 048
     Dates: start: 20191101

REACTIONS (4)
  - Polymyalgia rheumatica [Unknown]
  - Off label use [Unknown]
  - Intentional product use issue [Unknown]
  - Muscle haemorrhage [Recovered/Resolved]

NARRATIVE: CASE EVENT DATE: 20191112
